FAERS Safety Report 5705153-0 (Version None)
Quarter: 2008Q2

REPORT INFORMATION
  Report Type: 
  Country: None (occurrence: None)
  Receive Date: 20080414
  Receipt Date: 20080402
  Transmission Date: 20081010
  Serious: Yes (Other)
  Sender: FDA-Public Use
  Company Number: FI-GENENTECH-259084

PATIENT
  Age: 73 Year
  Sex: Male

DRUGS (1)
  1. MABTHERA [Suspect]
     Indication: RHEUMATOID ARTHRITIS
     Dosage: 1000 MG, UNK
     Route: 042
     Dates: start: 20071009

REACTIONS (6)
  - CARDIAC FAILURE CONGESTIVE [None]
  - COUGH [None]
  - DYSPNOEA [None]
  - PERICARDITIS CONSTRICTIVE [None]
  - PHARYNGOLARYNGEAL PAIN [None]
  - WEIGHT INCREASED [None]
